FAERS Safety Report 8822537 (Version 1)
Quarter: 2012Q4

REPORT INFORMATION
  Report Type: 
  Country: US (occurrence: US)
  Receive Date: 20121003
  Receipt Date: 20121003
  Transmission Date: 20130627
  Serious: No
  Sender: FDA-Public Use
  Company Number: US-009507513-1208USA008663

PATIENT

DRUGS (1)
  1. TICE BCG LIVE [Suspect]

REACTIONS (3)
  - Limb injury [Unknown]
  - Accidental exposure to product [Unknown]
  - Product quality issue [Unknown]
